FAERS Safety Report 7594688-4 (Version None)
Quarter: 2011Q3

REPORT INFORMATION
  Report Type: 
  Country: None (occurrence: None)
  Receive Date: 20110707
  Receipt Date: 20110627
  Transmission Date: 20111222
  Serious: Yes (Hospitalization)
  Sender: FDA-Public Use
  Company Number: GB-JNJFOC-20100506722

PATIENT
  Age: 2 Year
  Sex: Male

DRUGS (4)
  1. IBUPROFEN [Suspect]
     Indication: PYREXIA
     Route: 048
  2. ACETAMINOPHEN [Concomitant]
     Indication: UROSEPSIS
     Route: 048
  3. IBUPROFEN [Suspect]
     Indication: VOMITING
     Route: 048
  4. TRIMETHOPRIM [Concomitant]
     Indication: UROSEPSIS
     Route: 048

REACTIONS (3)
  - RENAL FAILURE [None]
  - RENAL PAPILLARY NECROSIS [None]
  - URETERIC OBSTRUCTION [None]
